FAERS Safety Report 12921559 (Version 2)
Quarter: 2016Q4

REPORT INFORMATION
  Report Type: Spontaneous
  Country: CA (occurrence: CA)
  Receive Date: 20161108
  Receipt Date: 20161222
  Transmission Date: 20170207
  Serious: Yes (Hospitalization)
  Sender: FDA-Public Use
  Company Number: CA-SA-2016SA200569

PATIENT
  Age: 74 Year
  Sex: Female
  Weight: 66 kg

DRUGS (22)
  1. WARFARIN [Interacting]
     Active Substance: WARFARIN
     Indication: ATRIAL FIBRILLATION
     Dosage: 13-JUN-2015 START DATE
     Route: 065
  2. WARFARIN [Interacting]
     Active Substance: WARFARIN
     Indication: ATRIAL FIBRILLATION
     Dosage: 14-JUN-2015 START DATE
     Route: 065
  3. WARFARIN [Interacting]
     Active Substance: WARFARIN
     Indication: ATRIAL FIBRILLATION
     Dosage: 17-JUN-2015 START DATE
     Route: 065
  4. CLONAZEPAM. [Concomitant]
     Active Substance: CLONAZEPAM
     Route: 065
  5. FUROSEMIDE. [Concomitant]
     Active Substance: FUROSEMIDE
     Route: 065
  6. POTASSIUM CHLORIDE. [Concomitant]
     Active Substance: POTASSIUM CHLORIDE
     Route: 065
  7. WARFARIN [Interacting]
     Active Substance: WARFARIN
     Indication: ATRIAL FIBRILLATION
     Dosage: 15-JUN-2015 START DATE
     Route: 065
  8. ENOXAPARIN SODIUM. [Suspect]
     Active Substance: ENOXAPARIN SODIUM
     Indication: ANTICOAGULANT THERAPY
     Route: 058
     Dates: start: 20150604, end: 20150609
  9. WARFARIN [Interacting]
     Active Substance: WARFARIN
     Indication: MITRAL VALVE REPLACEMENT
     Dosage: 13-JUN-2015 START DATE
     Route: 065
  10. WARFARIN [Interacting]
     Active Substance: WARFARIN
     Indication: MITRAL VALVE REPLACEMENT
     Dosage: 14-JUN-2015 START DATE
     Route: 065
  11. WARFARIN [Interacting]
     Active Substance: WARFARIN
     Indication: ATRIAL FIBRILLATION
     Dosage: 16-JUN-2015 START DATE
     Route: 065
  12. ACETAMINOPHEN. [Concomitant]
     Active Substance: ACETAMINOPHEN
     Route: 065
  13. METOPROLOL. [Concomitant]
     Active Substance: METOPROLOL
     Route: 065
  14. WARFARIN [Interacting]
     Active Substance: WARFARIN
     Indication: MITRAL VALVE REPLACEMENT
     Route: 048
     Dates: end: 20150610
  15. WARFARIN [Interacting]
     Active Substance: WARFARIN
     Indication: MITRAL VALVE REPLACEMENT
     Dosage: 15-JUN-2015 START DATE
     Route: 065
  16. ATORVASTATIN CALCIUM. [Concomitant]
     Active Substance: ATORVASTATIN CALCIUM
     Route: 065
  17. WARFARIN [Interacting]
     Active Substance: WARFARIN
     Indication: MITRAL VALVE REPLACEMENT
     Route: 065
     Dates: start: 2005
  18. WARFARIN [Interacting]
     Active Substance: WARFARIN
     Indication: ATRIAL FIBRILLATION
     Route: 048
     Dates: end: 20150610
  19. WARFARIN [Interacting]
     Active Substance: WARFARIN
     Indication: ATRIAL FIBRILLATION
     Route: 065
     Dates: start: 2005
  20. WARFARIN [Interacting]
     Active Substance: WARFARIN
     Indication: MITRAL VALVE REPLACEMENT
     Dosage: 16-JUN-2015 START DATE
     Route: 065
  21. WARFARIN [Interacting]
     Active Substance: WARFARIN
     Indication: MITRAL VALVE REPLACEMENT
     Dosage: 17-JUN-2015 START DATE
     Route: 065
  22. OMEPRAZOLE. [Concomitant]
     Active Substance: OMEPRAZOLE
     Dosage: FORM - CAPSULE, DELAYED RELEASE
     Route: 065

REACTIONS (5)
  - Haemoglobin decreased [Recovered/Resolved]
  - Drug interaction [Recovered/Resolved]
  - International normalised ratio increased [Recovered/Resolved]
  - Abdominal pain [Recovered/Resolved]
  - Gastric haemorrhage [Recovered/Resolved]

NARRATIVE: CASE EVENT DATE: 20150607
